FAERS Safety Report 7022588-7 (Version None)
Quarter: 2010Q3

REPORT INFORMATION
  Report Type: 
  Country: None (occurrence: None)
  Receive Date: 20100930
  Receipt Date: 20100922
  Transmission Date: 20110219
  Serious: Yes (Other)
  Sender: FDA-Public Use
  Company Number: SE-PFIZER INC-2010115052

PATIENT
  Age: 68 Year
  Sex: Male
  Weight: 74 kg

DRUGS (14)
  1. CHAMPIX [Suspect]
     Indication: SMOKING CESSATION THERAPY
     Dosage: UNK
     Dates: start: 20100815
  2. CHAMPIX [Suspect]
     Dosage: 1 MG, 2X/DAY
     Dates: end: 20100824
  3. CLOPIDOGREL [Concomitant]
     Dosage: 75 MG, 1X/DAY
  4. FURIX [Concomitant]
     Dosage: 40 MG, 1X/DAY
  5. SPIRONOLACTONE [Concomitant]
     Dosage: 25 MG, 1X/DAY
  6. RAMIPRIL [Concomitant]
     Dosage: 2.5 MG, 2X/DAY
  7. ASPIRIN [Concomitant]
     Dosage: 75 MG, 1X/DAY
  8. BEHEPAN [Concomitant]
     Dosage: 1 MG, 1X/DAY
  9. EMCONCOR [Concomitant]
     Dosage: 2.5 MG, 1X/DAY
  10. VENLAFAXINE [Concomitant]
     Dosage: 75 MG, 1X/DAY
  11. IMDUR [Concomitant]
     Dosage: 60 MG, 1X/DAY
  12. SYMBICORT [Concomitant]
     Dosage: UNK
  13. NITROMEX [Concomitant]
     Dosage: 0.5 MG, AS NEEDED
  14. ACETAMINOPHEN W/ CODEINE [Concomitant]
     Dosage: UNK

REACTIONS (4)
  - HYPOAESTHESIA [None]
  - HYPOAESTHESIA FACIAL [None]
  - HYPOAESTHESIA ORAL [None]
  - NEUROTOXICITY [None]
